FAERS Safety Report 24948022 (Version 1)
Quarter: 2025Q1

REPORT INFORMATION
  Report Type: Spontaneous
  Country: GB (occurrence: GB)
  Receive Date: 20250210
  Receipt Date: 20250210
  Transmission Date: 20250409
  Serious: No
  Sender: ALKEM
  Company Number: None

PATIENT
  Age: 79 Year
  Sex: Female
  Weight: 95 kg

DRUGS (10)
  1. EZETIMIBE [Suspect]
     Active Substance: EZETIMIBE
     Indication: Type IIb hyperlipidaemia
     Route: 065
     Dates: start: 20240311, end: 20240317
  2. EZETIMIBE [Suspect]
     Active Substance: EZETIMIBE
     Indication: Ill-defined disorder
     Route: 065
     Dates: start: 20240402
  3. ALLOPURINOL [Concomitant]
     Active Substance: ALLOPURINOL
     Indication: Ill-defined disorder
     Dosage: UNK, QD, (ONE TO BE TAKEN EACH DAY AFTER FOOD )
     Route: 065
     Dates: start: 20230829
  4. AMLODIPINE [Concomitant]
     Active Substance: AMLODIPINE BESYLATE
     Indication: Ill-defined disorder
     Dosage: UNK, QD, (TAKEN ONE DAILY)
     Route: 065
     Dates: start: 20230829, end: 20240328
  5. ATORVASTATIN [Concomitant]
     Active Substance: ATORVASTATIN
     Indication: Ill-defined disorder
     Dosage: UNK, QD, (TAKE ONE DAILY)
     Route: 065
     Dates: start: 20230829, end: 20240304
  6. COSOPT [Concomitant]
     Active Substance: DORZOLAMIDE HYDROCHLORIDE\TIMOLOL MALEATE
     Indication: Ill-defined disorder
     Dosage: UNK, BID,(ONE DROP TWICE DAILY TO LEFT EYE )
     Route: 065
     Dates: start: 20240129
  7. BECLOMETHASONE\FORMOTEROL [Concomitant]
     Active Substance: BECLOMETHASONE\FORMOTEROL
     Indication: Ill-defined disorder
     Dosage: UNK, BID,(1-2 PUFFS TWICE A DAY)
     Route: 065
     Dates: start: 20230829
  8. LEVOTHYROXINE [Concomitant]
     Active Substance: LEVOTHYROXINE
     Indication: Ill-defined disorder
     Dosage: UNK, QD, (TAKE ONE DAILY)
     Route: 065
     Dates: start: 20230829
  9. LISINOPRIL [Concomitant]
     Active Substance: LISINOPRIL
     Indication: Ill-defined disorder
     Dosage: UNK, QD, (TAKE ONE DAILY)
     Route: 065
     Dates: start: 20230829
  10. SERTRALINE [Concomitant]
     Active Substance: SERTRALINE HYDROCHLORIDE
     Indication: Ill-defined disorder
     Dosage: UNK, QD,(ONE TO BE TAKEN EACH DAY)
     Route: 065
     Dates: start: 20230829

REACTIONS (1)
  - Epistaxis [Recovered/Resolved]

NARRATIVE: CASE EVENT DATE: 20240311
